FAERS Safety Report 5873354-7 (Version None)
Quarter: 2008Q3

REPORT INFORMATION
  Report Type: 
  Country: None (occurrence: None)
  Receive Date: 20080908
  Receipt Date: 20080828
  Transmission Date: 20090109
  Serious: Yes (Other)
  Sender: FDA-Public Use
  Company Number: NZ-NOVOPROD-278808

PATIENT
  Age: 26 Year
  Sex: Female

DRUGS (4)
  1. LEVEMIR [Suspect]
     Indication: DRUG USE FOR UNKNOWN INDICATION
  2. NOVORAPID [Suspect]
     Indication: DRUG USE FOR UNKNOWN INDICATION
  3. PROTAPHANE [Suspect]
     Indication: DRUG USE FOR UNKNOWN INDICATION
  4. INSULIN GLARGINE [Concomitant]
     Indication: DRUG USE FOR UNKNOWN INDICATION

REACTIONS (2)
  - ECZEMA [None]
  - HYPOGLYCAEMIA [None]
